FAERS Safety Report 26183281 (Version 1)
Quarter: 2025Q4

REPORT INFORMATION
  Report Type: Spontaneous
  Country: GB (occurrence: GB)
  Receive Date: 20251221
  Receipt Date: 20251221
  Transmission Date: 20260117
  Serious: Yes (Hospitalization, Disabling, Other)
  Sender: AUROBINDO
  Company Number: GB-MHRA-MED-202512091909206830-DKBTP

PATIENT
  Age: 18 Year
  Sex: Female
  Weight: 50 kg

DRUGS (1)
  1. NAPROXEN [Suspect]
     Active Substance: NAPROXEN
     Indication: Adverse drug reaction
     Dosage: UNK
     Route: 065

REACTIONS (1)
  - Platelet dysfunction [Not Recovered/Not Resolved]

NARRATIVE: CASE EVENT DATE: 20250801
